FAERS Safety Report 17917831 (Version 5)
Quarter: 2021Q4

REPORT INFORMATION
  Report Type: Spontaneous
  Country: US (occurrence: US)
  Receive Date: 20200619
  Receipt Date: 20211213
  Transmission Date: 20220303
  Serious: Yes (Other)
  Sender: FDA-Public Use
  Company Number: US-JNJFOC-20200616280

PATIENT
  Age: 4 Decade
  Sex: Female

DRUGS (65)
  1. ELMIRON [Suspect]
     Active Substance: PENTOSAN POLYSULFATE SODIUM
     Indication: Cystitis interstitial
     Route: 048
     Dates: start: 200305, end: 201808
  2. ELMIRON [Suspect]
     Active Substance: PENTOSAN POLYSULFATE SODIUM
     Route: 048
     Dates: end: 2019
  3. HYDROXYZINE PAMOATE [Concomitant]
     Active Substance: HYDROXYZINE PAMOATE
     Indication: Cystitis interstitial
     Dates: start: 2001
  4. HYDROXYZINE PAMOATE [Concomitant]
     Active Substance: HYDROXYZINE PAMOATE
     Indication: Antiallergic therapy
     Dates: start: 200906, end: 201502
  5. HYDROXYZINE PAMOATE [Concomitant]
     Active Substance: HYDROXYZINE PAMOATE
     Dates: start: 201411, end: 202009
  6. CYCLOBENZAPRINE [Concomitant]
     Active Substance: CYCLOBENZAPRINE
     Indication: Pain management
     Dates: start: 1998
  7. CYCLOBENZAPRINE [Concomitant]
     Active Substance: CYCLOBENZAPRINE
     Dates: start: 1999, end: 201801
  8. CARISOPRODOL [Concomitant]
     Active Substance: CARISOPRODOL
     Indication: Pain management
     Dates: start: 201201
  9. CARISOPRODOL [Concomitant]
     Active Substance: CARISOPRODOL
     Dates: start: 201903, end: 202006
  10. HYOSCYAMINE [Concomitant]
     Active Substance: HYOSCYAMINE
     Indication: Frequent bowel movements
     Dosage: ORALLY DISINTEGRATING TABLETS (ODT)
     Dates: start: 201204, end: 201209
  11. HYOSCYAMINE [Concomitant]
     Active Substance: HYOSCYAMINE
     Dates: start: 201503, end: 201512
  12. HYOSCYAMINE [Concomitant]
     Active Substance: HYOSCYAMINE
     Dates: start: 201711, end: 201910
  13. HYOSCYAMINE [Concomitant]
     Active Substance: HYOSCYAMINE
     Dates: start: 201803
  14. HYDROCHLOROTHIAZIDE [Concomitant]
     Active Substance: HYDROCHLOROTHIAZIDE
     Indication: Blood pressure measurement
     Dates: start: 201503, end: 201612
  15. HYDROCHLOROTHIAZIDE [Concomitant]
     Active Substance: HYDROCHLOROTHIAZIDE
     Dates: start: 201701
  16. HYDROCHLOROTHIAZIDE [Concomitant]
     Active Substance: HYDROCHLOROTHIAZIDE
     Dates: start: 201006, end: 201009
  17. HYDROCHLOROTHIAZIDE [Concomitant]
     Active Substance: HYDROCHLOROTHIAZIDE
     Dates: start: 201306, end: 201412
  18. LEVONORGESTREL [Concomitant]
     Active Substance: LEVONORGESTREL
     Indication: Contraception
     Dates: start: 2010
  19. LEVONORGESTREL [Concomitant]
     Active Substance: LEVONORGESTREL
     Dates: start: 201101
  20. PANTOPRAZOLE [Concomitant]
     Active Substance: PANTOPRAZOLE
     Indication: Irritability
     Dates: start: 201104, end: 201104
  21. PANTOPRAZOLE [Concomitant]
     Active Substance: PANTOPRAZOLE
     Dates: start: 201211, end: 201501
  22. PANTOPRAZOLE [Concomitant]
     Active Substance: PANTOPRAZOLE
     Dates: start: 201206, end: 201210
  23. PANTOPRAZOLE [Concomitant]
     Active Substance: PANTOPRAZOLE
     Dates: start: 201502, end: 201606
  24. PANTOPRAZOLE [Concomitant]
     Active Substance: PANTOPRAZOLE
     Dates: start: 201606
  25. PANTOPRAZOLE [Concomitant]
     Active Substance: PANTOPRAZOLE
     Dates: start: 201810, end: 201902
  26. ROPINIROLE [Concomitant]
     Active Substance: ROPINIROLE
     Indication: Pain management
     Dates: start: 200907
  27. METHADONE [Concomitant]
     Active Substance: METHADONE HYDROCHLORIDE
     Indication: Pain management
     Dates: start: 200908
  28. METHADONE [Concomitant]
     Active Substance: METHADONE HYDROCHLORIDE
     Dates: start: 201307, end: 202009
  29. PHENAZOPYRIDINE [Concomitant]
     Active Substance: PHENAZOPYRIDINE
     Indication: Cystitis interstitial
     Dates: start: 2001, end: 201411
  30. PHENAZOPYRIDINE [Concomitant]
     Active Substance: PHENAZOPYRIDINE
     Indication: Analgesic therapy
     Dates: start: 201411
  31. OXYCODONE [Concomitant]
     Active Substance: OXYCODONE
     Indication: Pain management
     Dates: start: 2000
  32. OXYCODONE [Concomitant]
     Active Substance: OXYCODONE
     Dates: start: 202005, end: 202009
  33. DURAGESIC [Concomitant]
     Active Substance: FENTANYL
     Indication: Pain management
     Dates: start: 2000, end: 2009
  34. MACROBID [Concomitant]
     Active Substance: NITROFURANTOIN\NITROFURANTOIN MONOHYDRATE
     Indication: Cystitis interstitial
     Dates: start: 2000, end: 2010
  35. PREDNISONE [Concomitant]
     Active Substance: PREDNISONE
     Indication: Inflammation
     Dates: start: 2009
  36. PREDNISONE [Concomitant]
     Active Substance: PREDNISONE
     Dates: start: 201002, end: 201106
  37. PREDNISONE [Concomitant]
     Active Substance: PREDNISONE
     Dates: start: 201201, end: 201209
  38. PREDNISONE [Concomitant]
     Active Substance: PREDNISONE
     Dates: start: 201212, end: 201411
  39. PREDNISONE [Concomitant]
     Active Substance: PREDNISONE
     Dates: start: 201403, end: 201612
  40. PREDNISONE [Concomitant]
     Active Substance: PREDNISONE
     Dates: start: 201701
  41. PREDNISONE [Concomitant]
     Active Substance: PREDNISONE
     Dates: start: 201901, end: 201905
  42. LISINOPRIL [Concomitant]
     Active Substance: LISINOPRIL
     Indication: Blood pressure measurement
     Dates: start: 2016
  43. LISINOPRIL [Concomitant]
     Active Substance: LISINOPRIL
     Dates: start: 201905
  44. FUROSEMIDE [Concomitant]
     Active Substance: FUROSEMIDE
     Indication: Fluid retention
     Dates: start: 201904
  45. FUROSEMIDE [Concomitant]
     Active Substance: FUROSEMIDE
     Dates: start: 201901, end: 201905
  46. HYDROXYCHLOROQUINE [Concomitant]
     Active Substance: HYDROXYCHLOROQUINE
     Indication: Systemic lupus erythematosus
     Dates: start: 201401, end: 202005
  47. CEVIMELINE [Concomitant]
     Active Substance: CEVIMELINE
     Indication: Dry mouth
     Dates: start: 201603, end: 201711
  48. CEVIMELINE [Concomitant]
     Active Substance: CEVIMELINE
     Dates: start: 201805, end: 201904
  49. LINZESS [Concomitant]
     Active Substance: LINACLOTIDE
     Indication: Gastrointestinal disorder
     Dates: start: 201904, end: 201904
  50. LINZESS [Concomitant]
     Active Substance: LINACLOTIDE
     Dates: start: 201901, end: 201903
  51. LINZESS [Concomitant]
     Active Substance: LINACLOTIDE
     Dates: start: 201908, end: 201908
  52. HYDROXYZINE HYDROCHLORIDE [Concomitant]
     Active Substance: HYDROXYZINE HYDROCHLORIDE
     Indication: Antiallergic therapy
     Dates: start: 201901, end: 201912
  53. PROCTOZONE HC [Concomitant]
     Active Substance: HYDROCORTISONE
     Indication: Inflammation
     Dates: start: 201901, end: 201905
  54. HYDROCHLOROTHIAZIDE\TRIAMTERENE [Concomitant]
     Active Substance: HYDROCHLOROTHIAZIDE\TRIAMTERENE
     Indication: Blood pressure measurement
     Dosage: TRIAMTERENE 37.5MG/ HCTZ 25MG TABS
     Dates: start: 201101, end: 201201
  55. LYBREL [Concomitant]
     Active Substance: ETHINYL ESTRADIOL\LEVONORGESTREL
     Indication: Contraception
     Dates: start: 201003, end: 201106
  56. TIZANIDINE [Concomitant]
     Active Substance: TIZANIDINE
     Dates: start: 201103, end: 201107
  57. AMLODIPINE BESYLATE [Concomitant]
     Active Substance: AMLODIPINE BESYLATE
     Indication: Blood pressure measurement
  58. CELEBREX [Concomitant]
     Active Substance: CELECOXIB
     Indication: Pain management
     Dates: start: 200904, end: 201211
  59. SPIRONOLACTONE [Concomitant]
     Active Substance: SPIRONOLACTONE
     Dates: start: 201204, end: 201310
  60. SPIRONOLACTONE [Concomitant]
     Active Substance: SPIRONOLACTONE
     Dates: start: 201212, end: 201303
  61. NORLYDA [Concomitant]
     Active Substance: NORETHINDRONE
     Indication: Contraception
     Dates: start: 202003, end: 202007
  62. IRON [Concomitant]
     Active Substance: IRON
     Indication: Mineral supplementation
     Dates: start: 201004, end: 201109
  63. IRON [Concomitant]
     Active Substance: IRON
     Dates: start: 201307, end: 201409
  64. IRON [Concomitant]
     Active Substance: IRON
     Dates: start: 201501, end: 201501
  65. IRON [Concomitant]
     Active Substance: IRON
     Dates: start: 201201, end: 201307

REACTIONS (6)
  - Blindness [Unknown]
  - Maculopathy [Unknown]
  - Age-related macular degeneration [Unknown]
  - Macular degeneration [Not Recovered/Not Resolved]
  - Off label use [Unknown]
  - Product use issue [Unknown]

NARRATIVE: CASE EVENT DATE: 20040101
